FAERS Safety Report 6991308-4 (Version None)
Quarter: 2010Q3

REPORT INFORMATION
  Report Type: 
  Country: None (occurrence: None)
  Receive Date: 20100916
  Receipt Date: 20081113
  Transmission Date: 20110219
  Serious: No
  Sender: FDA-Public Use
  Company Number: US-WYE-H06839908

PATIENT
  Sex: Female
  Weight: 58.11 kg

DRUGS (1)
  1. PREMARIN [Suspect]
     Indication: HORMONE REPLACEMENT THERAPY
     Route: 048
     Dates: start: 19980101

REACTIONS (3)
  - BLOOD PRESSURE INCREASED [None]
  - FEELING JITTERY [None]
  - FLUSHING [None]
